FAERS Safety Report 4744483-6 (Version None)
Quarter: 2005Q3

REPORT INFORMATION
  Report Type: 
  Country: None (occurrence: None)
  Receive Date: 20050809
  Receipt Date: 20050714
  Transmission Date: 20060218
  Serious: Yes (Death, Other)
  Sender: FDA-Public Use
  Company Number: 200511237BWH

PATIENT
  Age: 65 Year
  Sex: Male
  Weight: 127.0072 kg

DRUGS (9)
  1. BAYCOL [Suspect]
     Dosage: 0.4 MG, QD, ORAL
     Route: 048
     Dates: start: 19950101, end: 19970101
  2. BAYCOL [Suspect]
     Dosage: 0.4 MG, QD, ORAL
     Route: 048
     Dates: start: 19970101, end: 20000101
  3. MONOPROL [Concomitant]
  4. ASPIRIN [Concomitant]
  5. GLUCOPHAGE [Concomitant]
  6. GLIPIZIDE [Concomitant]
  7. TIMOPTIC [Concomitant]
  8. MOM [Concomitant]
  9. GLUCOTROL [Concomitant]

REACTIONS (8)
  - CARDIAC ARREST [None]
  - CAROTID ARTERY OCCLUSION [None]
  - CHEST PAIN [None]
  - CONSTIPATION [None]
  - ELECTROMECHANICAL DISSOCIATION [None]
  - HAEMORRHAGIC STROKE [None]
  - ISCHAEMIC STROKE [None]
  - VASCULAR BYPASS GRAFT [None]
